FAERS Safety Report 19645715 (Version 5)
Quarter: 2022Q1

REPORT INFORMATION
  Report Type: Report from Study
  Country: US (occurrence: US)
  Receive Date: 20210802
  Receipt Date: 20220217
  Transmission Date: 20220423
  Serious: Yes (Hospitalization, Other)
  Sender: FDA-Public Use
  Company Number: US-BIOVITRUM-2021US7127

PATIENT
  Age: 54 Year
  Sex: Male

DRUGS (6)
  1. KINERET [Suspect]
     Active Substance: ANAKINRA
     Indication: Infection
     Route: 058
     Dates: start: 20200703
  2. KINERET [Suspect]
     Active Substance: ANAKINRA
     Route: 058
     Dates: start: 202007
  3. IRON [Suspect]
     Active Substance: IRON
     Dosage: PILL
  4. UNSPECIFIED INGREDIENT [Suspect]
     Active Substance: UNSPECIFIED INGREDIENT
  5. DAPTOMYCIN [Suspect]
     Active Substance: DAPTOMYCIN
  6. MEROPENEM [Suspect]
     Active Substance: MEROPENEM

REACTIONS (10)
  - Sinusitis [Unknown]
  - Bacteraemia [Unknown]
  - Sepsis [Unknown]
  - Adverse drug reaction [Unknown]
  - Blood iron decreased [Unknown]
  - Vitamin D decreased [Unknown]
  - Abdominal discomfort [Unknown]
  - Fatigue [Unknown]
  - Anxiety [Unknown]
  - Off label use [Not Recovered/Not Resolved]

NARRATIVE: CASE EVENT DATE: 20200703
